FAERS Safety Report 6156597-7 (Version None)
Quarter: 2009Q2

REPORT INFORMATION
  Report Type: 
  Country: None (occurrence: None)
  Receive Date: 20090413
  Receipt Date: 20081211
  Transmission Date: 20091009
  Serious: Yes (Hospitalization)
  Sender: FDA-Public Use
  Company Number: OPER20080218

PATIENT
  Age: 28 Year
  Sex: Female
  Weight: 78.0187 kg

DRUGS (4)
  1. OPANA ER [Suspect]
     Indication: BACK PAIN
     Dosage: 30 MG, 1 TAB BID, PER ORAL
     Route: 048
     Dates: start: 20080812, end: 20081018
  2. XANAX [Concomitant]
  3. CYMBALTA [Concomitant]
  4. PROTONIX [Concomitant]

REACTIONS (1)
  - PANCREATITIS ACUTE [None]
